FAERS Safety Report 14468200 (Version 2)
Quarter: 2020Q3

REPORT INFORMATION
  Report Type: Report from Study
  Country: JP (occurrence: JP)
  Receive Date: 20180131
  Receipt Date: 20200810
  Transmission Date: 20201102
  Serious: Yes (Other)
  Sender: FDA-Public Use
  Company Number: JP-ACTELION-A-CH2018-166812

PATIENT
  Age: 70 Year
  Sex: Female
  Weight: 69.7 kg

DRUGS (15)
  1. UPTRAVI [Suspect]
     Active Substance: SELEXIPAG
     Dosage: 0.6 MG, BID
     Route: 048
     Dates: start: 20170322, end: 20170418
  2. DIART [Concomitant]
     Active Substance: AZOSEMIDE
     Indication: CARDIAC FAILURE
     Dosage: 7.5 MG, QD
     Dates: start: 20170304
  3. UPTRAVI [Suspect]
     Active Substance: SELEXIPAG
     Indication: PULMONARY ARTERIAL HYPERTENSION
     Dosage: 1.4 MG, BID
     Route: 048
     Dates: start: 20170517, end: 20170530
  4. UPTRAVI [Suspect]
     Active Substance: SELEXIPAG
     Dosage: 0.4 MG, BID
     Route: 048
     Dates: start: 20170308, end: 20170321
  5. UPTRAVI [Suspect]
     Active Substance: SELEXIPAG
     Dosage: 1.2 MG, BID
     Route: 048
     Dates: start: 20170502, end: 20170516
  6. UPTRAVI [Suspect]
     Active Substance: SELEXIPAG
     Dosage: 1.8 MG, BID
     Route: 048
     Dates: start: 20170614, end: 20170711
  7. UPTRAVI [Suspect]
     Active Substance: SELEXIPAG
     Dosage: 2.0 MG, BID
     Route: 048
     Dates: start: 20170712, end: 20170808
  8. REVATIO [Concomitant]
     Active Substance: SILDENAFIL CITRATE
     Indication: PULMONARY ARTERIAL HYPERTENSION
     Dosage: 60 MG, QD
     Dates: start: 20170112
  9. SPIRONOLACTONE. [Concomitant]
     Active Substance: SPIRONOLACTONE
     Indication: CARDIAC FAILURE
     Dosage: 25 MG, QD
     Dates: start: 20170304
  10. UPTRAVI [Suspect]
     Active Substance: SELEXIPAG
     Dosage: 2.4 MG, BID
     Route: 048
     Dates: start: 20170809
  11. OPSUMIT [Concomitant]
     Active Substance: MACITENTAN
     Indication: PULMONARY ARTERIAL HYPERTENSION
     Dosage: 10 MG, QD
     Dates: start: 20170114
  12. NEXIUM [Concomitant]
     Active Substance: ESOMEPRAZOLE MAGNESIUM
     Indication: PROPHYLAXIS
     Dosage: 20 MG, QD
     Dates: start: 20170117
  13. UPTRAVI [Suspect]
     Active Substance: SELEXIPAG
     Dosage: 1.0 MG, BID
     Route: 048
     Dates: start: 20170419, end: 20170501
  14. UPTRAVI [Suspect]
     Active Substance: SELEXIPAG
     Dosage: 1.6 MG, BID
     Route: 048
     Dates: start: 20170531, end: 20170613
  15. REBAMIPIDE [Concomitant]
     Active Substance: REBAMIPIDE
     Indication: PROPHYLAXIS
     Dosage: 300 MG, QD
     Dates: start: 20170116

REACTIONS (6)
  - Diarrhoea [Recovering/Resolving]
  - Platelet count decreased [Not Recovered/Not Resolved]
  - Pulmonary congestion [Recovering/Resolving]
  - Headache [Recovering/Resolving]
  - Drug titration error [Unknown]
  - Pain in jaw [Recovering/Resolving]

NARRATIVE: CASE EVENT DATE: 20170517
